FAERS Safety Report 5458883-2 (Version None)
Quarter: 2007Q3

REPORT INFORMATION
  Report Type: 
  Country: None (occurrence: None)
  Receive Date: 20070919
  Receipt Date: 20070910
  Transmission Date: 20080115
  Serious: Yes (Other)
  Sender: FDA-Public Use
  Company Number: PHBS2007JP14685

PATIENT
  Age: 73 Year
  Sex: Female

DRUGS (3)
  1. FEMARA [Suspect]
     Indication: BREAST CANCER
     Dosage: EVERY DAY
     Route: 048
  2. DOXIFLURIDINE [Concomitant]
     Indication: BREAST CANCER
     Dosage: EVERY DAY
     Route: 065
  3. CYCLOPHOSPHAMIDE [Concomitant]
     Indication: BREAST CANCER
     Dosage: 2 WEEKS ON, 2 WEEKS OFF
     Route: 065

REACTIONS (2)
  - ANAEMIA [None]
  - LEUKOPENIA [None]
